FAERS Safety Report 9519967 (Version 1)
Quarter: 2013Q1

REPORT INFORMATION
  Report Type: Spontaneous
  Country: US (occurrence: None)
  Receive Date: 20130305
  Receipt Date: 20130305
  Transmission Date: 20140127
  Serious: Yes (Other)
  Sender: FDA-Public Use
  Company Number: 163-21880-12091970

PATIENT
  Age: 73 Year
  Sex: Male

DRUGS (1)
  1. REVLIMID [Suspect]
     Indication: PLASMA CELL MYELOMA
     Dosage: 10-20MG TITRATED, DAY 1-14 THEN OFF 1 WEEK, PO
     Route: 048
     Dates: start: 20120313, end: 20120918

REACTIONS (4)
  - Decreased appetite [None]
  - Mental status changes [None]
  - Neuropathy peripheral [None]
  - Malaise [None]
